FAERS Safety Report 25664988 (Version 2)
Quarter: 2025Q3

REPORT INFORMATION
  Report Type: Spontaneous
  Country: EU (occurrence: EU)
  Receive Date: 20250811
  Receipt Date: 20250813
  Transmission Date: 20251020
  Serious: Yes (Hospitalization, Other)
  Sender: SANDOZ
  Company Number: EU-PFIZER INC-PV202400155559

PATIENT
  Age: 77 Year
  Sex: Female
  Weight: 50 kg

DRUGS (17)
  1. CYCLOPHOSPHAMIDE [Suspect]
     Active Substance: CYCLOPHOSPHAMIDE
     Indication: Diffuse large B-cell lymphoma
     Dosage: 1120 MG, 1X/DAY
     Route: 042
     Dates: start: 20220615, end: 20221005
  2. DOXORUBICIN HYDROCHLORIDE [Suspect]
     Active Substance: DOXORUBICIN HYDROCHLORIDE
     Indication: Diffuse large B-cell lymphoma
     Dosage: 76 MG, 1X/DAY
     Route: 042
     Dates: start: 20220615, end: 20221005
  3. PREDNISOLONE [Suspect]
     Active Substance: PREDNISOLONE
     Indication: Diffuse large B-cell lymphoma
     Dosage: 80 MG, 1X/DAY
     Route: 065
     Dates: start: 20220615, end: 20221005
  4. RITUXIMAB [Suspect]
     Active Substance: RITUXIMAB
     Indication: Diffuse large B-cell lymphoma
     Dosage: 55 MG, 1X/DAY
     Route: 042
     Dates: start: 20220615, end: 20221005
  5. VINCRISTINE SULFATE [Suspect]
     Active Substance: VINCRISTINE SULFATE
     Indication: Diffuse large B-cell lymphoma
     Dosage: 2 MG, 1X/DAY
     Route: 042
     Dates: start: 20220615, end: 20221005
  6. BACTRIM [Concomitant]
     Active Substance: SULFAMETHOXAZOLE\TRIMETHOPRIM
     Indication: Antiviral treatment
     Route: 048
     Dates: start: 202206
  7. Bain de bouche lipha [Concomitant]
     Indication: Prophylaxis
     Route: 048
     Dates: start: 2022
  8. BISOPROLOL [Concomitant]
     Active Substance: BISOPROLOL
     Indication: Atrial flutter
     Route: 048
     Dates: start: 20221018
  9. INNOHEP [Concomitant]
     Active Substance: TINZAPARIN SODIUM
     Indication: Thrombolysis
     Route: 058
     Dates: start: 202206, end: 202211
  10. LEUCOVORIN CALCIUM [Concomitant]
     Active Substance: LEUCOVORIN CALCIUM
     Indication: Product used for unknown indication
     Route: 048
     Dates: start: 20221012
  11. POLYETHYLENE GLYCOL 3350\POTASSIUM CHLORIDE\SODIUM BICARBONATE\SODIUM [Concomitant]
     Active Substance: POLYETHYLENE GLYCOL 3350\POTASSIUM CHLORIDE\SODIUM BICARBONATE\SODIUM CHLORIDE
     Indication: Laxative supportive care
     Route: 048
  12. PRIMPERAN [Concomitant]
     Active Substance: METOCLOPRAMIDE HYDROCHLORIDE
     Indication: Nausea
     Route: 048
  13. RAMIPRIL [Concomitant]
     Active Substance: RAMIPRIL
     Indication: Hypertension
     Route: 048
  14. OXAZEPAM [Concomitant]
     Active Substance: OXAZEPAM
     Indication: Anxiety
     Route: 048
  15. VALACYCLOVIR HYDROCHLORIDE [Concomitant]
     Active Substance: VALACYCLOVIR HYDROCHLORIDE
     Indication: Antiviral treatment
     Route: 048
     Dates: start: 202206
  16. Vitascorbol [Concomitant]
     Indication: Product used for unknown indication
     Route: 048
     Dates: start: 20221208
  17. XANAX [Concomitant]
     Active Substance: ALPRAZOLAM
     Indication: Product used for unknown indication
     Route: 065

REACTIONS (1)
  - Drug reaction with eosinophilia and systemic symptoms [Recovered/Resolved]

NARRATIVE: CASE EVENT DATE: 20221123
